FAERS Safety Report 6305380-8 (Version None)
Quarter: 2009Q3

REPORT INFORMATION
  Report Type: 
  Country: None (occurrence: None)
  Receive Date: 20090811
  Receipt Date: 20090805
  Transmission Date: 20100115
  Serious: Yes (Other)
  Sender: FDA-Public Use
  Company Number: US-AMGEN-KDL334611

PATIENT
  Sex: Male

DRUGS (7)
  1. ARANESP [Suspect]
     Indication: MYELODYSPLASTIC SYNDROME
     Dates: start: 20000101
  2. LEVOXYL [Concomitant]
  3. VITAMIN B-12 [Concomitant]
  4. FOLATE SODIUM [Concomitant]
  5. SELENIUM [Concomitant]
  6. CHROMIUM [Concomitant]
  7. LECITHIN [Concomitant]

REACTIONS (7)
  - BLOOD PRESSURE DECREASED [None]
  - BLOOD PRESSURE INCREASED [None]
  - CARDIOVASCULAR DISORDER [None]
  - MUSCLE SPASMS [None]
  - MYALGIA [None]
  - PARAESTHESIA [None]
  - TACHYCARDIA [None]
